FAERS Safety Report 14091701 (Version 1)
Quarter: 2017Q4

REPORT INFORMATION
  Report Type: Spontaneous
  Country: AU (occurrence: AU)
  Receive Date: 20171016
  Receipt Date: 20171016
  Transmission Date: 20180321
  Serious: Yes (Life-Threatening, Other)
  Sender: FDA-Public Use
  Company Number: AU-NOVOPROD-565629

PATIENT
  Age: 68 Year
  Sex: Male
  Weight: 85 kg

DRUGS (6)
  1. NOVORAPID [Suspect]
     Active Substance: INSULIN ASPART
     Dosage: 50 U, QD
     Route: 065
  2. NOVORAPID [Suspect]
     Active Substance: INSULIN ASPART
     Indication: TYPE 1 DIABETES MELLITUS
     Dosage: 10 U, QD (EVENING)
     Route: 065
     Dates: start: 201702
  3. LEVEMIR PENFILL [Suspect]
     Active Substance: INSULIN DETEMIR
     Indication: TYPE 1 DIABETES MELLITUS
     Dosage: 50 U, QD (MORNING)
     Route: 065
     Dates: start: 201702
  4. LEVEMIR PENFILL [Suspect]
     Active Substance: INSULIN DETEMIR
     Dosage: 10 U, QD
     Route: 065
  5. LEVEMIR PENFILL [Suspect]
     Active Substance: INSULIN DETEMIR
     Dosage: DAILY DOSE: 30 TO 40
     Route: 065
     Dates: end: 201703
  6. NOVORAPID [Suspect]
     Active Substance: INSULIN ASPART
     Dosage: DAILY DOSE: 30 TO 40
     Route: 065
     Dates: end: 201703

REACTIONS (5)
  - Product colour issue [Unknown]
  - Immune thrombocytopenic purpura [Recovered/Resolved with Sequelae]
  - Incorrect dose administered [Unknown]
  - Hypoglycaemic coma [Recovered/Resolved]
  - Atrioventricular block complete [Unknown]

NARRATIVE: CASE EVENT DATE: 20170401
